FAERS Safety Report 12401096 (Version 2)
Quarter: 2016Q2

REPORT INFORMATION
  Report Type: Spontaneous
  Country: US (occurrence: US)
  Receive Date: 20160525
  Receipt Date: 20160609
  Transmission Date: 20160815
  Serious: No
  Sender: FDA-Public Use
  Company Number: US-TEVA-663004ACC

PATIENT
  Sex: Female

DRUGS (1)
  1. PARAGARD T 380A [Suspect]
     Active Substance: COPPER
     Indication: CONTRACEPTION
     Dates: start: 2007, end: 20160517

REACTIONS (2)
  - Device breakage [Not Recovered/Not Resolved]
  - Complication associated with device [Not Recovered/Not Resolved]
